FAERS Safety Report 14152188 (Version 1)
Quarter: 2017Q4

REPORT INFORMATION
  Report Type: Spontaneous
  Country: US (occurrence: US)
  Receive Date: 20171102
  Receipt Date: 20171102
  Transmission Date: 20180321
  Serious: Yes (Other)
  Sender: FDA-Public Use
  Company Number: US-RECKITT BENCKISER HEALTHCARE INT LIMITED-RB-97362-2017

PATIENT
  Age: 84 Year
  Sex: Female

DRUGS (2)
  1. MUCINEX SINUS-MAX SEVERE CONGESTION RELIEF CLEAR AND COOL [Suspect]
     Active Substance: ACETAMINOPHEN\GUAIFENESIN\PHENYLEPHRINE HYDROCHLORIDE
     Indication: PRODUCT USED FOR UNKNOWN INDICATION
     Dosage: FREQUENCY OF USE: 4 TIMES
     Route: 065
     Dates: start: 20171019
  2. MUCINEX SINUS-MAX SEVERE CONGESTION RELIEF CLEAR AND COOL [Suspect]
     Active Substance: ACETAMINOPHEN\GUAIFENESIN\PHENYLEPHRINE HYDROCHLORIDE
     Dosage: 3 DOSES, SHE CUT THE DOSAGE IN HALF
     Route: 065
     Dates: start: 201710, end: 20171021

REACTIONS (3)
  - Wrong technique in product usage process [Recovered/Resolved]
  - Hypertension [Recovered/Resolved]
  - Dizziness [Recovered/Resolved]

NARRATIVE: CASE EVENT DATE: 20171019
